FAERS Safety Report 8457988-1 (Version None)
Quarter: 2012Q2

REPORT INFORMATION
  Report Type: 
  Country: None (occurrence: None)
  Receive Date: 20120622
  Receipt Date: 20120619
  Transmission Date: 20120825
  Serious: Yes (Other)
  Sender: FDA-Public Use
  Company Number: US-BAYER-2012-061508

PATIENT
  Age: 49 Year
  Sex: Female

DRUGS (2)
  1. BETASERON [Suspect]
     Indication: RELAPSING-REMITTING MULTIPLE SCLEROSIS
     Dosage: UNK
     Dates: start: 19940808, end: 19950808
  2. BETASERON [Suspect]
     Dosage: 8 MIU, QOD
     Dates: start: 20120518

REACTIONS (4)
  - MUSCLE SPASTICITY [None]
  - DRUG ADMINISTRATION ERROR [None]
  - SEIZURE LIKE PHENOMENA [None]
  - CHILLS [None]
